FAERS Safety Report 9580621 (Version 1)
Quarter: 2013Q4

REPORT INFORMATION
  Report Type: Spontaneous
  Country: AU (occurrence: AU)
  Receive Date: 20131002
  Receipt Date: 20131002
  Transmission Date: 20140711
  Serious: Yes (Other)
  Sender: FDA-Public Use
  Company Number: AU-TAKEDA-2013TJP001271

PATIENT
  Sex: 0

DRUGS (1)
  1. ACTOS [Suspect]
     Route: 048

REACTIONS (1)
  - Bladder cancer [Unknown]
